FAERS Safety Report 11936057 (Version 4)
Quarter: 2016Q3

REPORT INFORMATION
  Report Type: Report from Study
  Country: US (occurrence: US)
  Receive Date: 20160121
  Receipt Date: 20160714
  Transmission Date: 20161109
  Serious: Yes (Death, Hospitalization, Other)
  Sender: FDA-Public Use
  Company Number: US-AMGEN-USASL2015124160

PATIENT
  Age: 47 Year

DRUGS (2)
  1. DOXIL [Concomitant]
     Active Substance: DOXORUBICIN HYDROCHLORIDE
     Dosage: UNK
  2. KYPROLIS [Suspect]
     Active Substance: CARFILZOMIB
     Indication: PRODUCT USED FOR UNKNOWN INDICATION
     Dosage: UNK
     Route: 065

REACTIONS (3)
  - Death [Fatal]
  - Off label use [Unknown]
  - Hospitalisation [Unknown]

NARRATIVE: CASE EVENT DATE: 20160421
